FAERS Safety Report 21181323 (Version 2)
Quarter: 2024Q1

REPORT INFORMATION
  Report Type: Spontaneous
  Country: US (occurrence: US)
  Receive Date: 20220806
  Receipt Date: 20240312
  Transmission Date: 20240410
  Serious: No
  Sender: FDA-Public Use
  Company Number: US-SA-SAC20220801001826

PATIENT
  Age: 59 Year
  Sex: Female

DRUGS (3)
  1. DUPIXENT [Suspect]
     Active Substance: DUPILUMAB
     Indication: Dermatitis atopic
     Dosage: 300 MG, QOW
     Route: 058
  2. DUPIXENT [Suspect]
     Active Substance: DUPILUMAB
     Indication: Pulmonary sarcoidosis
  3. DUPIXENT [Suspect]
     Active Substance: DUPILUMAB
     Indication: Sarcoidosis of lymph node

REACTIONS (2)
  - Product use in unapproved indication [Unknown]
  - Product dose omission in error [Unknown]
